FAERS Safety Report 14337662 (Version 2)
Quarter: 2018Q1

REPORT INFORMATION
  Report Type: Spontaneous
  Country: US (occurrence: US)
  Receive Date: 20171229
  Receipt Date: 20180329
  Transmission Date: 20180509
  Serious: Yes (Death, Hospitalization, Other)
  Sender: FDA-Public Use
  Company Number: US-PFIZER INC-2017510527

PATIENT
  Age: 65 Year
  Sex: Female
  Weight: 105.7 kg

DRUGS (2)
  1. IBRANCE [Suspect]
     Active Substance: PALBOCICLIB
     Indication: BREAST CANCER
     Dosage: UNK, DAILY
     Dates: start: 20160526, end: 20170109
  2. IBRANCE [Suspect]
     Active Substance: PALBOCICLIB
     Dosage: UNK, ONCE A DAY
     Dates: start: 201604

REACTIONS (5)
  - Pneumonia [Unknown]
  - Ageusia [Unknown]
  - Neoplasm progression [Fatal]
  - Platelet count decreased [Unknown]
  - Cellulitis [Unknown]

NARRATIVE: CASE EVENT DATE: 2016
